FAERS Safety Report 23274875 (Version 2)
Quarter: 2023Q4

REPORT INFORMATION
  Report Type: Spontaneous
  Country: US (occurrence: None)
  Receive Date: 20231208
  Receipt Date: 20231213
  Transmission Date: 20240109
  Serious: Yes (Death)
  Sender: FDA-Public Use
  Company Number: US-ROCHE-3471675

PATIENT
  Age: 22 Year
  Sex: Female
  Weight: 60.382 kg

DRUGS (2)
  1. TNKASE [Suspect]
     Active Substance: TENECTEPLASE
     Indication: Product used for unknown indication
     Route: 065
  2. CAFFEINE [Concomitant]
     Active Substance: CAFFEINE

REACTIONS (1)
  - Death [Fatal]
